FAERS Safety Report 25092288 (Version 1)
Quarter: 2025Q1

REPORT INFORMATION
  Report Type: Spontaneous
  Country: BE (occurrence: BE)
  Receive Date: 20250319
  Receipt Date: 20250319
  Transmission Date: 20250409
  Serious: Yes (Other)
  Sender: GLAXOSMITHKLINE
  Company Number: BE-GSKCCFEMEA-Case-02267983_AE-95266

PATIENT

DRUGS (1)
  1. NUCALA [Suspect]
     Active Substance: MEPOLIZUMAB
     Indication: Product used for unknown indication

REACTIONS (4)
  - Pneumonia [Unknown]
  - Influenza [Unknown]
  - Inflammation [Unknown]
  - General physical health deterioration [Unknown]
